FAERS Safety Report 5278497-7 (Version None)
Quarter: 2007Q1

REPORT INFORMATION
  Report Type: 
  Country: None (occurrence: None)
  Receive Date: 20070328
  Receipt Date: 20070321
  Transmission Date: 20070707
  Serious: Yes (Death, Hospitalization)
  Sender: FDA-Public Use
  Company Number: IT-AMGEN-UK211431

PATIENT
  Sex: Male

DRUGS (3)
  1. PANITUMUMAB [Suspect]
     Indication: COLORECTAL CANCER
     Route: 042
     Dates: start: 20070122, end: 20070205
  2. ELOXATIN (SANOFI) [Suspect]
     Route: 065
  3. FLUOROURACIL [Suspect]
     Route: 065

REACTIONS (6)
  - DIARRHOEA [None]
  - HEPATIC FAILURE [None]
  - HYPOTENSION [None]
  - METASTASES TO LIVER [None]
  - PYREXIA [None]
  - VOMITING [None]
